FAERS Safety Report 7493125-8 (Version None)
Quarter: 2011Q2

REPORT INFORMATION
  Report Type: 
  Country: None (occurrence: None)
  Receive Date: 20110520
  Receipt Date: 20110516
  Transmission Date: 20111010
  Serious: Yes (Death, Other)
  Sender: FDA-Public Use
  Company Number: BR-US-EMD SERONO, INC.-7000648

PATIENT
  Sex: Male

DRUGS (7)
  1. AMITRIPTYLINE HCL [Concomitant]
  2. IMUNEM [Concomitant]
  3. FLUOXETINE [Concomitant]
  4. CHLORPROMAZINE [Concomitant]
  5. BACLOFEN [Concomitant]
  6. CLONAZEPAM [Concomitant]
  7. REBIF [Suspect]
     Indication: MULTIPLE SCLEROSIS
     Dates: start: 20070101, end: 20110509

REACTIONS (12)
  - PERIPHERAL CIRCULATORY FAILURE [None]
  - ACTIVITIES OF DAILY LIVING IMPAIRED [None]
  - DYSPNOEA [None]
  - DYSPHAGIA [None]
  - MULTIPLE SCLEROSIS [None]
  - INFLUENZA [None]
  - DYSARTHRIA [None]
  - CHOKING [None]
  - MOBILITY DECREASED [None]
  - APHASIA [None]
  - MULTI-ORGAN FAILURE [None]
  - HALLUCINATION [None]
